FAERS Safety Report 6408370-X (Version None)
Quarter: 2009Q4

REPORT INFORMATION
  Report Type: 
  Country: None (occurrence: None)
  Receive Date: 20091021
  Receipt Date: 20091015
  Transmission Date: 20100525
  Serious: Yes (Hospitalization)
  Sender: FDA-Public Use
  Company Number: PHEH2009US11617

PATIENT
  Sex: Male

DRUGS (9)
  1. DIOVAN HCT [Suspect]
     Indication: BLOOD PRESSURE
     Dosage: 160/12.5 MG, UNK
     Route: 048
     Dates: start: 20050101
  2. KLOR-CON [Suspect]
     Indication: BLOOD PRESSURE
     Dosage: 40 MEQ MONDAY, WEDNESDAY, FRIDAY
     Route: 048
     Dates: start: 20050101
  3. KLOR-CON [Suspect]
     Dosage: 20 MEQ TUESDAY, THURSDAY, SATURDAY, SUNDAY
     Route: 048
     Dates: start: 20050101
  4. KLOR-CON [Suspect]
     Dosage: 40 MEQ, EVERY EVENING 7 DAYS PER WEEK
     Route: 048
     Dates: start: 20050101
  5. FUROSEMIDE [Suspect]
     Indication: OEDEMA
     Dosage: 40 MG MONDAY, WEDNESDAY, FRIDAY
     Route: 048
     Dates: start: 20040101
  6. FUROSEMIDE [Suspect]
     Dosage: 20 MG TUESDAY, THURSDAY, SATURDAY, SUNDAY
     Route: 048
     Dates: start: 20040101
  7. MINOXIDIL [Suspect]
     Indication: BLOOD PRESSURE
     Dosage: 2.5 MG, BID
     Route: 048
     Dates: start: 20050101
  8. TEGRETOL-XR [Concomitant]
     Dosage: UNK, UNK
  9. CATAPRES                                /UNK/ [Concomitant]
     Dosage: UNK, UNK
     Route: 065
     Dates: start: 20040101

REACTIONS (2)
  - DRUG INEFFECTIVE [None]
  - HYPERTENSION [None]
